FAERS Safety Report 13402529 (Version 1)
Quarter: 2017Q2

REPORT INFORMATION
  Report Type: Spontaneous
  Country: BR (occurrence: BR)
  Receive Date: 20170404
  Receipt Date: 20170404
  Transmission Date: 20170830
  Serious: Yes (Other)
  Sender: FDA-Public Use
  Company Number: BR-BAYER-2017-059332

PATIENT
  Sex: Female

DRUGS (2)
  1. YASMIN [Suspect]
     Active Substance: DROSPIRENONE\ETHINYL ESTRADIOL
  2. IBUPROFEN. [Interacting]
     Active Substance: IBUPROFEN

REACTIONS (2)
  - Drug interaction [Not Recovered/Not Resolved]
  - Poisoning [Not Recovered/Not Resolved]
